FAERS Safety Report 10195932 (Version 2)
Quarter: 2014Q2

REPORT INFORMATION
  Report Type: Spontaneous
  Country: US (occurrence: None)
  Receive Date: 20140522
  Receipt Date: 20140528
  Transmission Date: 20141212
  Serious: Yes (Hospitalization)
  Sender: FDA-Public Use
  Company Number: UNT-2014-000243

PATIENT
  Age: 37 Year
  Sex: Female
  Weight: 105.2 kg

DRUGS (3)
  1. REMODULIN [Suspect]
     Indication: COR PULMONALE CHRONIC
     Dosage: 0.00875 UG/KG CONTINUING, SUBCUTANEOUS
     Route: 058
     Dates: start: 20140328
  2. TRACLEER (BOSENTAN) [Concomitant]
  3. REVATIO (SILDENAFIL CITRATE) [Concomitant]

REACTIONS (3)
  - Infusion site infection [None]
  - Pain in extremity [None]
  - Systemic lupus erythematosus [None]
